FAERS Safety Report 8993620 (Version 1)
Quarter: 2013Q1

REPORT INFORMATION
  Report Type: Spontaneous
  Country: DE (occurrence: DE)
  Receive Date: 20130102
  Receipt Date: 20130102
  Transmission Date: 20140127
  Serious: Yes (Hospitalization)
  Sender: FDA-Public Use
  Company Number: DE-ASTRAZENECA-2012SE95522

PATIENT
  Age: 67 Year
  Sex: Female
  Weight: 55 kg

DRUGS (27)
  1. RAMIPRIL [Suspect]
     Indication: MYOCARDIAL ISCHAEMIA
     Route: 048
     Dates: start: 20120328
  2. RAMIPRIL [Suspect]
     Indication: MYOCARDIAL INFARCTION
     Route: 048
     Dates: start: 20120328
  3. RAMIPRIL [Suspect]
     Indication: MYOCARDIAL ISCHAEMIA
     Route: 048
     Dates: start: 20120331
  4. RAMIPRIL [Suspect]
     Indication: MYOCARDIAL INFARCTION
     Route: 048
     Dates: start: 20120331
  5. TICAGRELOR [Suspect]
     Indication: MYOCARDIAL INFARCTION
     Route: 048
     Dates: start: 20120328
  6. TICAGRELOR [Suspect]
     Indication: MYOCARDIAL INFARCTION
     Route: 048
     Dates: start: 20120328
  7. TICAGRELOR [Suspect]
     Indication: MYOCARDIAL INFARCTION
     Route: 048
     Dates: start: 20120329
  8. CARVEDILOL [Suspect]
     Route: 048
     Dates: start: 20120330
  9. CARVEDILOL [Suspect]
     Route: 065
     Dates: start: 20120330
  10. CARVEDILOL [Suspect]
     Route: 065
     Dates: start: 20120331, end: 20120403
  11. CARVEDILOL [Suspect]
     Route: 065
     Dates: start: 20120404
  12. EPLERENONE [Suspect]
     Indication: ACUTE MYOCARDIAL INFARCTION
     Route: 048
     Dates: start: 20120328, end: 20120328
  13. EPLERENONE [Suspect]
     Indication: ACUTE MYOCARDIAL INFARCTION
     Route: 048
     Dates: start: 20120329, end: 20120406
  14. ASPIRIN [Concomitant]
     Indication: MYOCARDIAL INFARCTION
     Route: 048
     Dates: start: 20120328
  15. SIMVASTATIN [Concomitant]
     Indication: MYOCARDIAL INFARCTION
     Route: 048
     Dates: start: 20120328
  16. PANTOZOL [Concomitant]
     Indication: GASTROOESOPHAGEAL REFLUX DISEASE
     Route: 048
     Dates: start: 201204
  17. RANOLAZINE [Concomitant]
     Indication: ANGINA PECTORIS
     Route: 048
     Dates: start: 201204
  18. RANOLAZINE [Concomitant]
     Indication: ANGINA PECTORIS
     Route: 048
     Dates: start: 20120403, end: 20120405
  19. CETIRIZINE [Concomitant]
     Indication: HYPERSENSITIVITY
     Route: 048
     Dates: start: 20120403, end: 20120407
  20. IBUPROFEN [Concomitant]
     Indication: PAIN
     Dates: start: 20120403, end: 20120404
  21. LACTULOSE [Concomitant]
     Indication: CONSTIPATION
     Dates: start: 20120404
  22. INTEGRILIN [Concomitant]
     Dates: start: 20120328
  23. SODIUM CHLORIDE [Concomitant]
     Route: 042
     Dates: start: 20120320
  24. NITRO [Concomitant]
     Indication: HYPERTENSION
     Dosage: 2 PUFF
     Route: 042
     Dates: start: 20120329
  25. HEPARIN [Concomitant]
     Indication: PROPHYLAXIS
     Dosage: 8000 IE
     Dates: start: 20120328
  26. HEPARIN [Concomitant]
     Indication: PROPHYLAXIS
     Dosage: 7200 IU
     Dates: start: 20120329
  27. LORAZEPAM [Concomitant]
     Indication: INSOMNIA
     Route: 048
     Dates: start: 20120405

REACTIONS (1)
  - Rash [Recovered/Resolved]
